FAERS Safety Report 12475808 (Version 2)
Quarter: 2017Q1

REPORT INFORMATION
  Report Type: Spontaneous
  Country: US (occurrence: US)
  Receive Date: 20160617
  Receipt Date: 20170109
  Transmission Date: 20170428
  Serious: Yes (Life-Threatening, Hospitalization)
  Sender: FDA-Public Use
  Company Number: US-JNJFOC-20160613800

PATIENT

DRUGS (1)
  1. RISPERIDONE. [Suspect]
     Active Substance: RISPERIDONE
     Indication: PRODUCT USED FOR UNKNOWN INDICATION
     Route: 065

REACTIONS (18)
  - Hypertension [Unknown]
  - Coma [Unknown]
  - Toxicity to various agents [Unknown]
  - Somnolence [Unknown]
  - Tachycardia [Unknown]
  - Irritability [Unknown]
  - Conduction disorder [Unknown]
  - Seizure [Unknown]
  - Medication error [Unknown]
  - Accidental exposure to product [Unknown]
  - Hypotension [Unknown]
  - Ataxia [Unknown]
  - Vomiting [Unknown]
  - Agitation [Unknown]
  - Dystonia [Unknown]
  - Miosis [Unknown]
  - Lethargy [Unknown]
  - Tremor [Unknown]
